FAERS Safety Report 14007670 (Version 1)
Quarter: 2017Q3

REPORT INFORMATION
  Report Type: Spontaneous
  Country: US (occurrence: None)
  Receive Date: 20170924
  Receipt Date: 20170924
  Transmission Date: 20171128
  Serious: No
  Sender: FDA-Public Use
  Company Number: None

PATIENT
  Sex: Male

DRUGS (1)
  1. STIVARGA [Suspect]
     Active Substance: REGORAFENIB
     Indication: HEPATOBILIARY CANCER
     Dosage: 2 TABLETS, INCREASE TO 4 TABLETS PER DR^S; DAILY FOR 21 DAYS ON, THEN OFF FOR 7 DAYS; BY MOUTH
     Route: 048
     Dates: start: 20170729

REACTIONS (3)
  - Joint swelling [None]
  - Hyperkeratosis [None]
  - Skin exfoliation [None]
